FAERS Safety Report 7407453-5 (Version None)
Quarter: 2011Q2

REPORT INFORMATION
  Report Type: 
  Country: None (occurrence: None)
  Receive Date: 20110411
  Receipt Date: 20110407
  Transmission Date: 20111010
  Serious: Yes (Other)
  Sender: FDA-Public Use
  Company Number: US-CEPHALON-2009007695

PATIENT
  Sex: Male
  Weight: 93 kg

DRUGS (7)
  1. PROVIGIL [Suspect]
     Indication: SLEEP APNOEA SYNDROME
     Route: 048
     Dates: start: 20090415
  2. CALCIUM/MAGNESIUM [Concomitant]
     Dates: start: 20090415
  3. WELLBUTRIN [Concomitant]
     Dates: start: 20090401, end: 20090401
  4. PROVIGIL [Suspect]
     Indication: ATTENTION DEFICIT/HYPERACTIVITY DISORDER
  5. MULTI-VITAMIN [Concomitant]
     Dates: start: 20090415
  6. LOVAZA [Concomitant]
     Dates: start: 20090201
  7. VITAMIN B-12 [Concomitant]
     Dates: start: 20090415

REACTIONS (3)
  - PAIN [None]
  - HYPERTENSIVE CRISIS [None]
  - HEADACHE [None]
